FAERS Safety Report 6632722-6 (Version None)
Quarter: 2010Q1

REPORT INFORMATION
  Report Type: 
  Country: None (occurrence: None)
  Receive Date: 20100312
  Receipt Date: 20100301
  Transmission Date: 20100710
  Serious: Yes (Hospitalization)
  Sender: FDA-Public Use
  Company Number: FR-ELI_LILLY_AND_COMPANY-FR200909000870

PATIENT
  Age: 80 Year
  Sex: Female
  Weight: 53 kg

DRUGS (4)
  1. FORTEO [Suspect]
     Indication: OSTEOPOROSIS
     Dosage: 20 UG, DAILY (1/D)
     Route: 058
     Dates: start: 20080913, end: 20090615
  2. ANTIHYPERTENSIVES [Concomitant]
     Dosage: UNK, UNKNOWN
     Route: 065
  3. COUMADIN [Concomitant]
     Indication: PULMONARY EMBOLISM
  4. DURAGESIC-100 [Concomitant]
     Indication: CARDIAC DISORDER
     Dosage: 25 MG, DAILY (1/D)
     Route: 062

REACTIONS (2)
  - FALL [None]
  - FEMORAL NECK FRACTURE [None]
